FAERS Safety Report 23914517 (Version 1)
Quarter: 2024Q2

REPORT INFORMATION
  Report Type: Report from Study
  Country: CN (occurrence: CN)
  Receive Date: 20240529
  Receipt Date: 20240529
  Transmission Date: 20240716
  Serious: Yes (Hospitalization)
  Sender: FDA-Public Use
  Company Number: CN-SUN PHARMACEUTICAL INDUSTRIES LTD-2024R1-448503

PATIENT
  Age: 49 Year
  Sex: Female
  Weight: 41.5 kg

DRUGS (2)
  1. SONIDEGIB [Suspect]
     Active Substance: SONIDEGIB
     Indication: Basal cell carcinoma
     Dosage: 200 MILLIGRAM, QD
     Route: 048
     Dates: start: 20230814, end: 20231204
  2. SONIDEGIB [Suspect]
     Active Substance: SONIDEGIB
     Dosage: 200 MILLIGRAM, QD
     Route: 048
     Dates: start: 20240103, end: 20240423

REACTIONS (2)
  - Pyrexia [Unknown]
  - Chills [Unknown]

NARRATIVE: CASE EVENT DATE: 20240509
